FAERS Safety Report 10681510 (Version 2)
Quarter: 2014Q4

REPORT INFORMATION
  Report Type: Spontaneous
  Country: GB (occurrence: None)
  Receive Date: 20141224
  Receipt Date: 20141231
  Transmission Date: 20150529
  Serious: Yes (Disabling, Other)
  Sender: FDA-Public Use
  Company Number: 2014-21005

PATIENT
  Age: 71 Year
  Sex: Male

DRUGS (1)
  1. EYLEA [Suspect]
     Active Substance: AFLIBERCEPT
     Indication: AGE-RELATED MACULAR DEGENERATION
     Route: 031
     Dates: start: 20141118, end: 20141118

REACTIONS (3)
  - Vitreous detachment [None]
  - Macular hole [None]
  - Visual acuity reduced [None]

NARRATIVE: CASE EVENT DATE: 20141118
